FAERS Safety Report 21956491 (Version 1)
Quarter: 2023Q1

REPORT INFORMATION
  Report Type: Spontaneous
  Country: DE (occurrence: DE)
  Receive Date: 20230206
  Receipt Date: 20230206
  Transmission Date: 20230417
  Serious: Yes (Other)
  Sender: FDA-Public Use
  Company Number: DE-JNJFOC-20230137721

PATIENT
  Age: 82 Year
  Sex: Male
  Weight: 75 kg

DRUGS (36)
  1. LENALIDOMIDE [Suspect]
     Active Substance: LENALIDOMIDE
     Indication: Plasma cell myeloma
     Dosage: UNK UNK, CYCLIC
     Route: 048
     Dates: start: 20220823
  2. LENALIDOMIDE [Suspect]
     Active Substance: LENALIDOMIDE
     Dosage: UNK UNK, CYCLIC
     Route: 048
     Dates: start: 20220920, end: 20220925
  3. LENALIDOMIDE [Suspect]
     Active Substance: LENALIDOMIDE
     Dosage: UNK UNK, CYCLIC
     Route: 048
     Dates: start: 20221012, end: 20221026
  4. LENALIDOMIDE [Suspect]
     Active Substance: LENALIDOMIDE
     Dosage: UNK UNK, CYCLIC
     Route: 048
     Dates: start: 20221102, end: 20221122
  5. LENALIDOMIDE [Suspect]
     Active Substance: LENALIDOMIDE
     Dosage: UNK UNK, CYCLIC
     Route: 048
     Dates: start: 20221203, end: 20221223
  6. DEXAMETHASONE [Suspect]
     Active Substance: DEXAMETHASONE
     Indication: Plasma cell myeloma
     Dosage: UNK, CYCLIC
     Route: 042
     Dates: start: 20220111
  7. DEXAMETHASONE [Suspect]
     Active Substance: DEXAMETHASONE
     Dosage: UNK, CYCLIC
     Route: 042
     Dates: start: 20220823
  8. DEXAMETHASONE [Suspect]
     Active Substance: DEXAMETHASONE
     Dosage: UNK, CYCLIC
     Route: 042
     Dates: start: 20220823
  9. DEXAMETHASONE [Suspect]
     Active Substance: DEXAMETHASONE
     Dosage: UNK, CYCLIC
     Route: 042
     Dates: start: 20220830
  10. DEXAMETHASONE [Suspect]
     Active Substance: DEXAMETHASONE
     Dosage: UNK, CYCLIC
     Route: 042
     Dates: start: 20220906
  11. DEXAMETHASONE [Suspect]
     Active Substance: DEXAMETHASONE
     Dosage: UNK, CYCLIC
     Route: 042
     Dates: start: 20220913
  12. DEXAMETHASONE [Suspect]
     Active Substance: DEXAMETHASONE
     Dosage: UNK, CYCLIC
     Route: 042
     Dates: start: 20220920
  13. DEXAMETHASONE [Suspect]
     Active Substance: DEXAMETHASONE
     Dosage: UNK, CYCLIC
     Route: 042
     Dates: start: 20220926
  14. DEXAMETHASONE [Suspect]
     Active Substance: DEXAMETHASONE
     Dosage: UNK, CYCLIC
     Route: 042
     Dates: start: 20221102
  15. DEXAMETHASONE [Suspect]
     Active Substance: DEXAMETHASONE
     Dosage: UNK, CYCLIC
     Route: 042
     Dates: start: 20221116
  16. DEXAMETHASONE [Suspect]
     Active Substance: DEXAMETHASONE
     Dosage: UNK, CYCLIC
     Route: 042
     Dates: start: 20221011
  17. DEXAMETHASONE [Suspect]
     Active Substance: DEXAMETHASONE
     Dosage: UNK, CYCLIC
     Route: 042
     Dates: start: 20221004
  18. DEXAMETHASONE [Suspect]
     Active Substance: DEXAMETHASONE
     Dosage: UNK, CYCLIC
     Route: 042
     Dates: start: 20221018
  19. DEXAMETHASONE [Suspect]
     Active Substance: DEXAMETHASONE
     Dosage: UNK, CYCLIC
     Route: 042
     Dates: start: 20221228
  20. DEXAMETHASONE [Suspect]
     Active Substance: DEXAMETHASONE
     Dosage: UNK, CYCLIC
     Route: 042
     Dates: start: 20221202
  21. DEXAMETHASONE [Suspect]
     Active Substance: DEXAMETHASONE
     Dosage: UNK, CYCLIC
     Route: 042
     Dates: start: 20221214
  22. DARATUMUMAB [Suspect]
     Active Substance: DARATUMUMAB
     Indication: Plasma cell myeloma
     Dosage: UNK UNK, Q2W
     Route: 042
     Dates: start: 20220823
  23. DARATUMUMAB [Suspect]
     Active Substance: DARATUMUMAB
     Dosage: UNK UNK, Q2W
     Route: 042
     Dates: start: 20220830
  24. DARATUMUMAB [Suspect]
     Active Substance: DARATUMUMAB
     Dosage: UNK UNK, Q2W
     Route: 042
     Dates: start: 20220906
  25. DARATUMUMAB [Suspect]
     Active Substance: DARATUMUMAB
     Dosage: UNK UNK, Q2W
     Route: 042
     Dates: start: 20220913
  26. DARATUMUMAB [Suspect]
     Active Substance: DARATUMUMAB
     Dosage: UNK UNK, Q2W
     Route: 042
     Dates: start: 20220920
  27. DARATUMUMAB [Suspect]
     Active Substance: DARATUMUMAB
     Dosage: UNK UNK, Q2W
     Route: 042
     Dates: start: 20220926
  28. DARATUMUMAB [Suspect]
     Active Substance: DARATUMUMAB
     Dosage: UNK UNK, Q2W
     Route: 042
     Dates: start: 20221004
  29. DARATUMUMAB [Suspect]
     Active Substance: DARATUMUMAB
     Dosage: UNK UNK, Q2W
     Route: 042
     Dates: start: 20221011
  30. DARATUMUMAB [Suspect]
     Active Substance: DARATUMUMAB
     Dosage: UNK UNK, Q2W
     Route: 042
     Dates: start: 20221116
  31. DARATUMUMAB [Suspect]
     Active Substance: DARATUMUMAB
     Dosage: UNK UNK, Q2W
     Route: 042
     Dates: start: 20221018
  32. DARATUMUMAB [Suspect]
     Active Substance: DARATUMUMAB
     Dosage: UNK UNK, Q2W
     Route: 042
     Dates: start: 20221102
  33. DARATUMUMAB [Suspect]
     Active Substance: DARATUMUMAB
     Dosage: UNK UNK, Q2W
     Route: 042
     Dates: start: 20221202
  34. DARATUMUMAB [Suspect]
     Active Substance: DARATUMUMAB
     Dosage: UNK UNK, Q2W
     Route: 042
     Dates: start: 20221214
  35. DARATUMUMAB [Suspect]
     Active Substance: DARATUMUMAB
     Dosage: UNK UNK, Q2W
     Route: 042
     Dates: start: 20221228
  36. DARATUMUMAB [Suspect]
     Active Substance: DARATUMUMAB
     Dosage: UNK UNK, Q2W
     Route: 042
     Dates: start: 20230111

REACTIONS (1)
  - Leukopenia [Unknown]

NARRATIVE: CASE EVENT DATE: 20230111
